FAERS Safety Report 11641062 (Version 1)
Quarter: 2015Q4

REPORT INFORMATION
  Report Type: Spontaneous
  Country: CN (occurrence: CN)
  Receive Date: 20151019
  Receipt Date: 20151019
  Transmission Date: 20160304
  Serious: Yes (Life-Threatening)
  Sender: FDA-Public Use
  Company Number: CN-PFIZER INC-2015341572

PATIENT
  Age: 52 Year
  Sex: Male
  Weight: 72 kg

DRUGS (4)
  1. LANSOPRAZOLE. [Suspect]
     Active Substance: LANSOPRAZOLE
     Indication: HYPERLIPIDAEMIA
     Dosage: 30 MG, 2X/DAY
     Route: 041
     Dates: start: 20150501, end: 20150507
  2. LIPITOR [Suspect]
     Active Substance: ATORVASTATIN CALCIUM
     Indication: HYPERLIPIDAEMIA
     Dosage: 20 MG, 1X/DAY
     Route: 048
     Dates: start: 20150501, end: 20150507
  3. LOW-MOLECULAR-WEIGHT HEPARIN SODIUM [Suspect]
     Active Substance: HEPARIN SODIUM
     Indication: COAGULOPATHY
     Dosage: 4250 IU, 2X/DAY
     Route: 058
     Dates: start: 20150501, end: 20150506
  4. PANTOPRAZOLE SODIUM. [Suspect]
     Active Substance: PANTOPRAZOLE SODIUM
     Indication: PROPHYLAXIS
     Dosage: 30MG Q12D
     Route: 041
     Dates: start: 20150501

REACTIONS (2)
  - Renal failure [Recovering/Resolving]
  - Hepatocellular injury [Recovering/Resolving]

NARRATIVE: CASE EVENT DATE: 20150507
